FAERS Safety Report 6596603-9 (Version None)
Quarter: 2010Q1

REPORT INFORMATION
  Report Type: 
  Country: None (occurrence: None)
  Receive Date: 20100212
  Receipt Date: 20100120
  Transmission Date: 20100710
  Serious: No
  Sender: FDA-Public Use
  Company Number: 2010-00069

PATIENT
  Sex: Female

DRUGS (1)
  1. ZICAM ALLERGY RELIEF GEL SWABS [Suspect]
     Dosage: APPROXIMATELY JAN 2008
     Dates: start: 20080101

REACTIONS (1)
  - ANOSMIA [None]
